FAERS Safety Report 4946186-1 (Version None)
Quarter: 2006Q1

REPORT INFORMATION
  Report Type: 
  Country: None (occurrence: None)
  Receive Date: 20060118
  Receipt Date: 20041203
  Transmission Date: 20060701
  Serious: Yes (Other)
  Sender: FDA-Public Use
  Company Number: US-JNJFOC-20041200919

PATIENT
  Sex: Female

DRUGS (3)
  1. DOXIL (DOXORUBICIN HYDROCHLORIDE) LIPOSME INJECTION [Suspect]
     Indication: KAPOSI'S SARCOMA
     Dosage: 30-35 MG/M^2
  2. DEXAMETHASONE [Concomitant]
  3. ZOFRAN [Concomitant]

REACTIONS (1)
  - INFUSION RELATED REACTION [None]
